FAERS Safety Report 9576809 (Version 1)
Quarter: 2013Q4

REPORT INFORMATION
  Report Type: Spontaneous
  Country: US (occurrence: US)
  Receive Date: 20131001
  Receipt Date: 20131001
  Transmission Date: 20140711
  Serious: No
  Sender: FDA-Public Use
  Company Number: US-AMGEN-USASP2013004754

PATIENT
  Age: 53 Year
  Sex: Male
  Weight: 88.44 kg

DRUGS (10)
  1. ENBREL [Suspect]
     Indication: PSORIASIS
     Dosage: 50 MG, QWK
     Route: 058
  2. CENTRUM                            /06095001/ [Concomitant]
     Dosage: UNK
  3. TOPAMAX [Concomitant]
     Dosage: 50 MG, UNK
  4. METHOTREXATE [Concomitant]
     Dosage: 2.5 MG, UNK
  5. SYNTHROID [Concomitant]
     Dosage: 88 MCG, UNK
  6. TRIAMCINOLON                       /00031901/ [Concomitant]
     Dosage: 0.5 %, UNK
  7. METOPROLOL [Concomitant]
     Dosage: 50 MG, ER
  8. VITAMIN B COMPLEX [Concomitant]
     Dosage: UNK
  9. FISH OIL [Concomitant]
     Dosage: UNK
  10. FOLIC ACID [Concomitant]
     Dosage: UNK

REACTIONS (2)
  - Drug ineffective [Unknown]
  - Skin plaque [Unknown]
